FAERS Safety Report 8055584-1 (Version None)
Quarter: 2011Q4

REPORT INFORMATION
  Report Type: 
  Country: None (occurrence: None)
  Receive Date: 20111213
  Receipt Date: 20111005
  Transmission Date: 20120403
  Serious: No
  Sender: FDA-Public Use
  Company Number: 2011SP047655

PATIENT
  Sex: Female

DRUGS (1)
  1. SAPHRIS [Suspect]
     Indication: BIPOLAR DISORDER

REACTIONS (3)
  - DRUG WITHDRAWAL HEADACHE [None]
  - DRUG DOSE OMISSION [None]
  - NAUSEA [None]
